FAERS Safety Report 5925576-4 (Version None)
Quarter: 2008Q4

REPORT INFORMATION
  Report Type: 
  Country: None (occurrence: None)
  Receive Date: 20081021
  Receipt Date: 20081014
  Transmission Date: 20090506
  Serious: Yes (Hospitalization, Congenital Anomaly)
  Sender: FDA-Public Use
  Company Number: A0687274A

PATIENT
  Sex: Male

DRUGS (2)
  1. PAXIL CR [Suspect]
     Indication: DEPRESSION
     Dates: start: 20020101, end: 20030701
  2. VITAMIN AND MINERAL PRENATAL SUPPLEMENT W/ FOLIC ACID CAP [Concomitant]

REACTIONS (4)
  - ASTHMA [None]
  - DRUG EXPOSURE DURING PREGNANCY [None]
  - PERSISTENT FOETAL CIRCULATION [None]
  - RESPIRATORY FAILURE [None]
